FAERS Safety Report 4814963-3 (Version None)
Quarter: 2005Q4

REPORT INFORMATION
  Report Type: 
  Country: None (occurrence: None)
  Receive Date: 20051028
  Receipt Date: 20051017
  Transmission Date: 20060501
  Serious: Yes (Death, Hospitalization)
  Sender: FDA-Public Use
  Company Number: US-JNJFOC-20051004067

PATIENT
  Age: 78 Year
  Sex: Male
  Weight: 92.08 kg

DRUGS (9)
  1. ULTRACET [Suspect]
     Indication: ARTHRITIS
     Route: 048
  2. ULTRACET [Suspect]
     Route: 048
  3. SERTROLINE [Concomitant]
     Indication: ANTIDEPRESSANT THERAPY
  4. CLONIDINE [Concomitant]
     Indication: BLOOD PRESSURE ABNORMAL
  5. ATENOLOL [Concomitant]
  6. KLONAZEPAM [Concomitant]
     Indication: ANTIDEPRESSANT THERAPY
  7. SULAR [Concomitant]
     Indication: BLOOD PRESSURE ABNORMAL
  8. MEDICATION NOS [Concomitant]
     Indication: THYROID DISORDER
  9. THYROID MEDICATION (NOS) [Concomitant]

REACTIONS (4)
  - PNEUMONIA [None]
  - RENAL FAILURE [None]
  - RESPIRATORY FAILURE [None]
  - WEIGHT DECREASED [None]
